FAERS Safety Report 11621884 (Version 2)
Quarter: 2015Q4

REPORT INFORMATION
  Report Type: Report from Study
  Country: JP (occurrence: JP)
  Receive Date: 20151013
  Receipt Date: 20151022
  Transmission Date: 20160304
  Serious: Yes (Hospitalization)
  Sender: FDA-Public Use
  Company Number: JP-ROCHE-1645451

PATIENT
  Age: 73 Year
  Sex: Male
  Weight: 51 kg

DRUGS (3)
  1. HALCION [Concomitant]
     Active Substance: TRIAZOLAM
     Dosage: DOSAGE IS UNCERTAIN.
     Route: 048
  2. PURSENNID [Concomitant]
     Active Substance: SENNOSIDES A AND B
     Dosage: DOSAGE IS UNCERTAIN.
     Route: 048
  3. METHOXY POLYETHYLENE GLYCOL-EPOETIN BETA [Suspect]
     Active Substance: METHOXY POLYETHYLENE GLYCOL-EPOETIN BETA
     Indication: NEPHROGENIC ANAEMIA
     Dosage: DOSAGE IS UNCERTAIN.
     Route: 042
     Dates: start: 20150909

REACTIONS (1)
  - Pneumonia [Not Recovered/Not Resolved]

NARRATIVE: CASE EVENT DATE: 20150929
